FAERS Safety Report 5483279-7 (Version None)
Quarter: 2007Q4

REPORT INFORMATION
  Report Type: 
  Country: None (occurrence: None)
  Receive Date: 20071012
  Receipt Date: 20071003
  Transmission Date: 20080405
  Serious: Yes (Disabling)
  Sender: FDA-Public Use
  Company Number: PHBS2007IT16601

PATIENT
  Age: 68 Year
  Sex: Male

DRUGS (5)
  1. ZOMETA [Suspect]
     Indication: METASTASES TO BONE
     Dosage: 1 DF MONTHLY
     Route: 042
     Dates: start: 20060329
  2. ENDOXAN [Concomitant]
     Dosage: 50 MG, UNK
     Route: 048
  3. CELEBREX [Concomitant]
     Dosage: 400 MG/DAY
     Route: 048
  4. DELTACORTENE [Concomitant]
     Dosage: 10 MG/DAY
     Route: 048
  5. RABEPRAZOLE SODIUM [Concomitant]
     Dosage: 20 MG, UNK
     Route: 048

REACTIONS (4)
  - OSTEONECROSIS [None]
  - PURULENCE [None]
  - SUTURE INSERTION [None]
  - WOUND TREATMENT [None]
